FAERS Safety Report 5896790-1 (Version None)
Quarter: 2008Q3

REPORT INFORMATION
  Report Type: 
  Country: None (occurrence: None)
  Receive Date: 20080924
  Receipt Date: 20080625
  Transmission Date: 20090109
  Serious: Yes (Other)
  Sender: FDA-Public Use
  Company Number: US-ASTRAZENECA-2007UW25541

PATIENT
  Age: 3543 Day
  Sex: Female
  Weight: 79.4 kg

DRUGS (6)
  1. SEROQUEL [Suspect]
     Indication: ATTENTION DEFICIT/HYPERACTIVITY DISORDER
     Dosage: 100 MG/TID, 300 MG HS
     Route: 048
     Dates: start: 20060501
  2. SEROQUEL [Suspect]
     Indication: AFFECTIVE DISORDER
     Dosage: 100 MG/TID, 300 MG HS
     Route: 048
     Dates: start: 20060501
  3. SEROQUEL [Suspect]
     Route: 048
  4. SEROQUEL [Suspect]
     Route: 048
  5. RISPERDAL [Suspect]
     Indication: ATTENTION DEFICIT/HYPERACTIVITY DISORDER
     Dates: start: 20060501
  6. RISPERDAL [Suspect]
     Indication: AFFECTIVE DISORDER
     Dates: start: 20060501

REACTIONS (1)
  - ATRIOVENTRICULAR BLOCK FIRST DEGREE [None]
